FAERS Safety Report 9843545 (Version 1)
Quarter: 2013Q4

REPORT INFORMATION
  Report Type: Spontaneous
  Country: US (occurrence: None)
  Receive Date: 20131219
  Receipt Date: 20131219
  Transmission Date: 20140711
  Serious: Yes (Hospitalization, Disabling)
  Sender: FDA-Public Use
  Company Number: 163-20785-13032716

PATIENT
  Age: 36 Year
  Sex: Male
  Weight: 91.99 kg

DRUGS (16)
  1. THALOMID (THALIDOMIDE) (200 MILLIGRAM, CAPSULES) [Suspect]
     Indication: PLASMA CELL MYELOMA
     Route: 048
     Dates: start: 201202
  2. ACYCLOVIR (ACICLOVIR) (ACICLOVIR) [Concomitant]
  3. AMITRIPTYLINE (AMITRIPTYLINE) [Concomitant]
  4. VITAMIN D (ERGOCALCIFEROL) [Concomitant]
  5. CYCLOBENZAPRINE (CYCLOBENZAPRINE) [Concomitant]
  6. DEXAMETHASONE (DEXAMETHASONE) [Concomitant]
  7. ESOMEPRAZOLE (ESOMEPRAZOLE) [Concomitant]
  8. FLUCONAZOLE (FLUCONAZOLE) [Concomitant]
  9. GABAPENTIN (GABAPENTIN) [Concomitant]
  10. HYDROCODONE/APAP (VICODIN) [Concomitant]
  11. LISINOPRIL (LISINOPRIL) [Concomitant]
  12. MAGNESIUM OXIDE (MAGNESIUM OXIDE) [Concomitant]
  13. ONDANSETRON (ONDANSETRON) [Concomitant]
  14. OXYCODONE (OXYCODONE) [Concomitant]
  15. PROMETHAZINE (PROMETHAZINE) [Concomitant]
  16. POTASSIUM CHLORIDE (POTASSIUM CHLORIDE) [Concomitant]

REACTIONS (2)
  - Plasma cell myeloma [None]
  - Hypercalcaemia [None]
